FAERS Safety Report 11322832 (Version 1)
Quarter: 2015Q3

REPORT INFORMATION
  Report Type: Spontaneous
  Country: US (occurrence: None)
  Receive Date: 20150729
  Receipt Date: 20150729
  Transmission Date: 20151125
  Serious: Yes (Other)
  Sender: FDA-Public Use
  Company Number: None

PATIENT
  Age: 37 Year
  Sex: Female
  Weight: 56.7 kg

DRUGS (1)
  1. NEXIUM [Suspect]
     Active Substance: ESOMEPRAZOLE MAGNESIUM
     Indication: ULCER
     Dosage: TAKEN BY MOUTH
     Dates: start: 20140807, end: 20141002

REACTIONS (12)
  - Anxiety [None]
  - Fatigue [None]
  - Decreased appetite [None]
  - Weight decreased [None]
  - Phaeochromocytoma [None]
  - Suicidal ideation [None]
  - Palpitations [None]
  - Insomnia [None]
  - Depression [None]
  - Panic attack [None]
  - Obsessive thoughts [None]
  - Crying [None]

NARRATIVE: CASE EVENT DATE: 20140807
